FAERS Safety Report 11187928 (Version 1)
Quarter: 2015Q2

REPORT INFORMATION
  Report Type: Spontaneous
  Country: US (occurrence: US)
  Receive Date: 20150615
  Receipt Date: 20150615
  Transmission Date: 20150821
  Serious: No
  Sender: FDA-Public Use
  Company Number: US-JNJFOC-20150420530

PATIENT
  Age: 73 Year
  Sex: Male
  Weight: 83.92 kg

DRUGS (2)
  1. IMODIUM MULTI-SYMPTOM RELIEF [Suspect]
     Active Substance: DIMETHICONE\LOPERAMIDE HYDROCHLORIDE
     Indication: ADVERSE EVENT
     Dosage: HALF CAPLET
     Route: 048
     Dates: end: 20150422
  2. IMODIUM MULTI-SYMPTOM RELIEF [Suspect]
     Active Substance: DIMETHICONE\LOPERAMIDE HYDROCHLORIDE
     Route: 048

REACTIONS (5)
  - Off label use [Unknown]
  - Incorrect dose administered [Unknown]
  - Wrong technique in drug usage process [Unknown]
  - Drug prescribing error [Unknown]
  - Intentional product use issue [Unknown]
